FAERS Safety Report 20070804 (Version 1)
Quarter: 2021Q4

REPORT INFORMATION
  Report Type: Spontaneous
  Country: BR (occurrence: BR)
  Receive Date: 20211115
  Receipt Date: 20211115
  Transmission Date: 20220303
  Serious: Yes (Other)
  Sender: FDA-Public Use
  Company Number: BR-SCALL-2021-BR-000128

PATIENT
  Age: 87 Year
  Sex: Male

DRUGS (1)
  1. DUTASTERIDE\TAMSULOSIN HYDROCHLORIDE [Suspect]
     Active Substance: DUTASTERIDE\TAMSULOSIN HYDROCHLORIDE
     Indication: Prostatic specific antigen increased
     Dosage: 0.5 MG (30 CAPSULE)
     Route: 065
     Dates: start: 2019

REACTIONS (2)
  - Dementia Alzheimer^s type [Unknown]
  - Product use complaint [Not Recovered/Not Resolved]
